FAERS Safety Report 7903558-0 (Version None)
Quarter: 2011Q4

REPORT INFORMATION
  Report Type: 
  Country: None (occurrence: None)
  Receive Date: 20111109
  Receipt Date: 20111109
  Transmission Date: 20120403
  Serious: Yes (Hospitalization)
  Sender: FDA-Public Use
  Company Number: None

PATIENT
  Age: 44 Year
  Sex: Female
  Weight: 97.522 kg

DRUGS (2)
  1. JANUMET [Suspect]
     Indication: TYPE 2 DIABETES MELLITUS
     Dosage: 1 TABLET
     Route: 048
     Dates: start: 20100101, end: 20111108
  2. IBUPROFEN [Concomitant]

REACTIONS (6)
  - PALPITATIONS [None]
  - FEELING ABNORMAL [None]
  - DRUG INTERACTION [None]
  - DYSPNOEA [None]
  - CHEST DISCOMFORT [None]
  - NAUSEA [None]
